FAERS Safety Report 5699273-7 (Version None)
Quarter: 2008Q2

REPORT INFORMATION
  Report Type: 
  Country: None (occurrence: None)
  Receive Date: 20080404
  Receipt Date: 20080324
  Transmission Date: 20081010
  Serious: Yes (Hospitalization, Other)
  Sender: FDA-Public Use
  Company Number: WAES 0803USA03969

PATIENT

DRUGS (2)
  1. OS TIMOPTIC 0.5% DRPS [Suspect]
     Indication: OCULAR HYPERTENSION
     Dosage: OPHT
     Route: 047
  2. XALATAN [Suspect]
     Indication: OCULAR HYPERTENSION
     Dosage: OPHT
     Route: 047

REACTIONS (3)
  - HYPOTENSION [None]
  - JOINT SPRAIN [None]
  - SYNCOPE [None]
